APPROVED DRUG PRODUCT: PORTALAC
Active Ingredient: LACTULOSE
Strength: 10GM/15ML
Dosage Form/Route: SOLUTION;ORAL, RECTAL
Application: A072374 | Product #001
Applicant: SOLVAY PHARMACEUTICALS
Approved: Mar 22, 1989 | RLD: No | RS: No | Type: DISCN